FAERS Safety Report 18608502 (Version 1)
Quarter: 2020Q4

REPORT INFORMATION
  Report Type: Spontaneous
  Country: FR (occurrence: FR)
  Receive Date: 20201212
  Receipt Date: 20201212
  Transmission Date: 20210114
  Serious: Yes (Other)
  Sender: FDA-Public Use
  Company Number: FR-ROCHE-2728660

PATIENT
  Age: 24 Year
  Sex: Male
  Weight: 96 kg

DRUGS (4)
  1. CLOZAPINE. [Suspect]
     Active Substance: CLOZAPINE
     Indication: SCHIZOPHRENIA
     Dosage: MOST RECENT DOSE RECEIVED PRIOR TO THE EVENT ONSET ON 17/NOV/2020
     Route: 048
     Dates: start: 20201115
  2. DIAZEPAM. [Suspect]
     Active Substance: DIAZEPAM
     Indication: ANXIETY
     Dosage: MOST RECENT DOSE RECEIVED PRIOR TO THE EVENT ONSET ON 17/NOV/2020
     Route: 048
  3. FLUVOXAMINE MALEATE. [Suspect]
     Active Substance: FLUVOXAMINE MALEATE
     Indication: ANXIETY
     Route: 048
     Dates: start: 20201113, end: 20201117
  4. METHADONE [Suspect]
     Active Substance: METHADONE HYDROCHLORIDE
     Indication: SUBSTANCE DEPENDENCE
     Route: 048

REACTIONS (2)
  - Somnolence [Recovered/Resolved]
  - Balance disorder [Recovered/Resolved]

NARRATIVE: CASE EVENT DATE: 20201117
